FAERS Safety Report 7950763-3 (Version None)
Quarter: 2011Q4

REPORT INFORMATION
  Report Type: 
  Country: None (occurrence: None)
  Receive Date: 20111123
  Receipt Date: 20111109
  Transmission Date: 20120403
  Serious: Yes (Hospitalization, Other)
  Sender: FDA-Public Use
  Company Number: 11-750

PATIENT
  Age: 36 Year
  Sex: Female

DRUGS (3)
  1. IBUPROFEN [Suspect]
     Indication: EAR PAIN
     Dosage: 400MG + 600MG /  /ORAL
     Route: 048
  2. IBUPROFEN [Suspect]
     Indication: MYALGIA
     Dosage: 400MG + 600MG /  /ORAL
     Route: 048
  3. AMOXICILLIN [Concomitant]

REACTIONS (4)
  - HYPERSENSITIVITY [None]
  - MENINGITIS ASEPTIC [None]
  - ENCEPHALITIS [None]
  - PSYCHOMOTOR RETARDATION [None]
